FAERS Safety Report 4308340-1 (Version None)
Quarter: 2004Q1

REPORT INFORMATION
  Report Type: 
  Country: None (occurrence: None)
  Receive Date: 20040301
  Receipt Date: 20040220
  Transmission Date: 20041129
  Serious: Yes (Life-Threatening, Hospitalization, Other)
  Sender: FDA-Public Use
  Company Number: 200410392DE

PATIENT
  Age: 60 Year
  Sex: Female
  Weight: 80 kg

DRUGS (6)
  1. ARAVA [Suspect]
     Indication: POLYARTHRITIS
     Route: 048
  2. LASIX [Concomitant]
     Indication: DIURETIC THERAPY
     Route: 048
  3. SANDIMMUNE [Concomitant]
     Indication: IMMUNOSUPPRESSION
     Route: 048
  4. METOPROLOL SUCCINATE [Concomitant]
     Indication: HYPERTENSION
     Route: 048
  5. ALLOPURINOL [Concomitant]
     Route: 048
  6. SODIUM-BICARBONAT [Concomitant]
     Dosage: DOSE: 2-2-2
     Route: 048

REACTIONS (4)
  - COLONIC STENOSIS [None]
  - DIVERTICULITIS [None]
  - HEPATIC FAILURE [None]
  - POSTOPERATIVE RENAL FAILURE [None]
